FAERS Safety Report 4948945-8 (Version None)
Quarter: 2006Q1

REPORT INFORMATION
  Report Type: 
  Country: None (occurrence: None)
  Receive Date: 20060321
  Receipt Date: 20050916
  Transmission Date: 20060701
  Serious: Yes (Hospitalization)
  Sender: FDA-Public Use
  Company Number: DE-BRISTOL-MYERS SQUIBB COMPANY-13115522

PATIENT
  Age: 65 Year
  Sex: Female

DRUGS (8)
  1. CYCLOPHOSPHAMIDE [Suspect]
     Indication: BREAST CANCER
     Route: 042
     Dates: start: 20050819, end: 20050902
  2. TAXOL [Suspect]
     Indication: BREAST CANCER
     Route: 042
     Dates: start: 20050708, end: 20050805
  3. EPIRUBICIN [Suspect]
     Indication: BREAST CANCER
     Route: 042
     Dates: start: 20050527, end: 20050624
  4. METOCLOPRAMIDE [Concomitant]
     Dates: start: 20020527, end: 20050905
  5. DEXAMETHASONE TAB [Concomitant]
     Dates: start: 20050527, end: 20050905
  6. ARANESP [Concomitant]
     Dates: start: 20050527, end: 20050902
  7. NEULASTA [Concomitant]
     Route: 058
     Dates: start: 20050528, end: 20050903
  8. IRON (FERROUS SULFATE) [Concomitant]
     Dates: start: 20050527

REACTIONS (2)
  - LEUKOPENIA [None]
  - TACHYARRHYTHMIA [None]
